FAERS Safety Report 23399477 (Version 2)
Quarter: 2024Q1

REPORT INFORMATION
  Report Type: Spontaneous
  Country: US (occurrence: US)
  Receive Date: 20240113
  Receipt Date: 20240130
  Transmission Date: 20240409
  Serious: No
  Sender: FDA-Public Use
  Company Number: US-ABBVIE-5584957

PATIENT
  Age: 37 Year
  Sex: Female

DRUGS (2)
  1. BOTOX [Suspect]
     Active Substance: ONABOTULINUMTOXINA
     Indication: Temporomandibular joint syndrome
     Dosage: TIME INTERVAL: AS NECESSARY
     Route: 065
     Dates: start: 20231218, end: 20231218
  2. DYSPORT [Suspect]
     Active Substance: ABOBOTULINUMTOXINA
     Indication: Product used for unknown indication
     Route: 065

REACTIONS (18)
  - Trismus [Recovered/Resolved]
  - Nausea [Recovered/Resolved]
  - Photophobia [Unknown]
  - Asthenia [Unknown]
  - Neck pain [Recovered/Resolved]
  - Off label use [Not Recovered/Not Resolved]
  - Viral infection [Unknown]
  - Pain [Unknown]
  - Masticatory pain [Unknown]
  - Muscular weakness [Recovered/Resolved]
  - Dyspnoea [Recovered/Resolved]
  - Confusional state [Recovered/Resolved]
  - Musculoskeletal stiffness [Recovered/Resolved]
  - Headache [Recovered/Resolved]
  - Eye pain [Unknown]
  - Somatic symptom disorder [Not Recovered/Not Resolved]
  - Influenza like illness [Unknown]
  - Muscle disorder [Unknown]

NARRATIVE: CASE EVENT DATE: 20231225
